FAERS Safety Report 6054408-1 (Version None)
Quarter: 2009Q1

REPORT INFORMATION
  Report Type: 
  Country: None (occurrence: None)
  Receive Date: 20090127
  Receipt Date: 20090115
  Transmission Date: 20090719
  Serious: Yes (Life-Threatening, Hospitalization, Other)
  Sender: FDA-Public Use
  Company Number: JP-PFIZER INC-2008063116

PATIENT

DRUGS (12)
  1. CELECOX [Suspect]
     Indication: SPINAL OSTEOARTHRITIS
     Route: 048
     Dates: start: 20080509, end: 20080726
  2. GABAPEN [Suspect]
     Indication: PAIN
     Route: 048
     Dates: start: 20080709, end: 20080726
  3. RIVOTRIL [Concomitant]
     Indication: PAIN
     Route: 048
     Dates: start: 20080509, end: 20080726
  4. CODEINE PHOSPHATE [Concomitant]
     Indication: PAIN
     Route: 048
     Dates: start: 20080509, end: 20080726
  5. PURSENNID [Concomitant]
     Indication: CONSTIPATION
     Route: 048
     Dates: start: 20080509, end: 20080726
  6. LAXOBERON [Concomitant]
     Indication: CONSTIPATION
     Route: 048
     Dates: start: 20080509, end: 20080726
  7. NOVAMIN [Concomitant]
     Indication: NAUSEA
     Route: 048
     Dates: start: 20080509, end: 20080726
  8. XYLOCAINE [Concomitant]
     Indication: PAIN
     Dosage: UNK MG, 1X/DAY
     Route: 061
     Dates: start: 20080509, end: 20080726
  9. FENTANYL CITRATE [Concomitant]
     Indication: PAIN
     Dates: start: 20080625
  10. XYLOCAINE [Concomitant]
     Dosage: 100 MG, 1X/DAY
     Dates: start: 20080716
  11. MEPIVACAINE HYDROCHLORIDE [Concomitant]
     Indication: NERVE BLOCK
     Dosage: 2 ML, 1X/DAY
     Dates: start: 20080601
  12. METHYLPREDNISOLONE [Concomitant]
     Indication: NERVE BLOCK
     Dosage: 40 MG, 1X/DAY
     Dates: start: 20080601

REACTIONS (9)
  - ACTIVITIES OF DAILY LIVING IMPAIRED [None]
  - ASTHENIA [None]
  - CARDIO-RESPIRATORY ARREST [None]
  - DEEP VEIN THROMBOSIS [None]
  - EATING DISORDER [None]
  - HEPATIC FUNCTION ABNORMAL [None]
  - OVERDOSE [None]
  - PULMONARY EMBOLISM [None]
  - SOMNOLENCE [None]
